FAERS Safety Report 14976654 (Version 3)
Quarter: 2019Q1

REPORT INFORMATION
  Report Type: Spontaneous
  Country: JP (occurrence: JP)
  Receive Date: 20180605
  Receipt Date: 20190311
  Transmission Date: 20190417
  Serious: Yes (Other)
  Sender: FDA-Public Use
  Company Number: JP-GILEAD-2018-0342423

PATIENT
  Age: 53 Year
  Sex: Female
  Weight: 56 kg

DRUGS (12)
  1. HARVONI [Suspect]
     Active Substance: LEDIPASVIR\SOFOSBUVIR
     Indication: CHRONIC HEPATITIS C
     Dosage: UNK
     Route: 065
     Dates: start: 20180411, end: 20180703
  2. MAGNESIUM OXIDE. [Suspect]
     Active Substance: MAGNESIUM OXIDE
     Indication: CONSTIPATION
     Dosage: 330 MG, TID
     Route: 048
     Dates: start: 20180502
  3. ETHYL LOFLAZEPATE [Concomitant]
     Active Substance: ETHYL LOFLAZEPATE
     Indication: SCHIZOPHRENIA
     Dosage: 1 MG, UNK
     Route: 048
  4. PAROXETINE. [Concomitant]
     Active Substance: PAROXETINE
     Indication: SCHIZOPHRENIA
     Dosage: 5 MG, UNK
     Route: 048
  5. HUSCODE [Interacting]
     Active Substance: CHLORPHENIRAMINE MALEATE\DIHYDROCODEINE PHOSPHATE\METHYLEPHEDRINE HYDROCHLORIDE, DL-
     Indication: EMPHYSEMA
     Dosage: 3 DF, TID
     Route: 048
     Dates: start: 20180529, end: 20180529
  6. CARBOCISTEINE [Interacting]
     Active Substance: CARBOCYSTEINE
     Indication: EMPHYSEMA
     Dosage: 1 DF, TID
     Route: 048
     Dates: start: 20180529, end: 20180529
  7. SITAFLOXACIN [Interacting]
     Active Substance: SITAFLOXACIN
     Indication: EMPHYSEMA
     Dosage: 100 MG, UNK
     Route: 048
     Dates: start: 20180529, end: 20180529
  8. FLUNITRAZEPAM [Concomitant]
     Active Substance: FLUNITRAZEPAM
     Indication: SCHIZOPHRENIA
     Dosage: 2 MG, UNK
     Route: 048
  9. LAXOBERON [Suspect]
     Active Substance: SODIUM PICOSULFATE
     Indication: CONSTIPATION
     Dosage: 15 GTT DROPS, PRN
     Route: 065
     Dates: start: 20180402, end: 20190218
  10. MERCAZOLE                          /00022901/ [Concomitant]
     Active Substance: METHIMAZOLE
     Indication: BASEDOW^S DISEASE
     Dosage: 5 MG, UNK
     Route: 048
     Dates: start: 2017
  11. ANORO ELLIPTA [Interacting]
     Active Substance: UMECLIDINIUM BROMIDE\VILANTEROL TRIFENATATE
     Indication: EMPHYSEMA
     Dosage: UNK, QD
     Route: 055
     Dates: start: 20180529, end: 20180529
  12. LULLAN [Concomitant]
     Active Substance: PEROSPIRONE HYDROCHLORIDE
     Indication: SCHIZOPHRENIA
     Dosage: 4 MG, UNK
     Route: 048

REACTIONS (10)
  - Emphysema [Recovered/Resolved]
  - Cough [Recovered/Resolved]
  - Malaise [Recovered/Resolved]
  - Lung infection [Recovered/Resolved]
  - Pyrexia [Recovered/Resolved]
  - Constipation [Recovered/Resolved]
  - Productive cough [Unknown]
  - Dysphonia [Unknown]
  - Nausea [Recovered/Resolved]
  - Haemoptysis [Recovered/Resolved]

NARRATIVE: CASE EVENT DATE: 20180502
